FAERS Safety Report 5527371-7 (Version None)
Quarter: 2007Q4

REPORT INFORMATION
  Report Type: 
  Country: None (occurrence: None)
  Receive Date: 20071123
  Receipt Date: 20071115
  Transmission Date: 20080405
  Serious: Yes (Disabling, Other)
  Sender: FDA-Public Use
  Company Number: 2007S1008415

PATIENT
  Age: 85 Year
  Sex: Male

DRUGS (1)
  1. PHOSPHOSODA FLAVOR NOT SPECIFIED [Suspect]
     Indication: COLONOSCOPY
     Dosage: 2 UNIT; X1; PO
     Route: 048
     Dates: start: 20030629, end: 20030629

REACTIONS (8)
  - DECREASED APPETITE [None]
  - DEHYDRATION [None]
  - DIALYSIS [None]
  - DIARRHOEA [None]
  - HYPOVOLAEMIA [None]
  - NAUSEA [None]
  - RENAL FAILURE ACUTE [None]
  - RENAL TUBULAR NECROSIS [None]
